FAERS Safety Report 4821739-X (Version None)
Quarter: 2005Q4

REPORT INFORMATION
  Report Type: 
  Country: None (occurrence: None)
  Receive Date: 20051103
  Receipt Date: 20051018
  Transmission Date: 20060501
  Serious: Yes (Hospitalization)
  Sender: FDA-Public Use
  Company Number: USA0508105096

PATIENT
  Sex: Female

DRUGS (9)
  1. CYMBALTA [Suspect]
     Indication: DIABETIC NEUROPATHY
     Dosage: 30 MG DAY
     Dates: start: 20050706, end: 20050711
  2. CYMBALTA [Suspect]
     Indication: NEURALGIA
     Dosage: 30 MG DAY
     Dates: start: 20050706, end: 20050711
  3. ARICEPT [Concomitant]
  4. NAMENDA [Concomitant]
  5. GLUCOPHAGE [Concomitant]
  6. BENICAR [Concomitant]
  7. KEPPRA [Concomitant]
  8. INSULIN [Concomitant]
  9. LIPITOR [Concomitant]

REACTIONS (9)
  - AGITATION [None]
  - ATROPHY [None]
  - BLOOD CREATININE INCREASED [None]
  - CATATONIA [None]
  - DEHYDRATION [None]
  - DEMENTIA [None]
  - DEPRESSED LEVEL OF CONSCIOUSNESS [None]
  - DISORIENTATION [None]
  - HYPOTENSION [None]
